FAERS Safety Report 5987221-1 (Version None)
Quarter: 2008Q4

REPORT INFORMATION
  Report Type: 
  Country: None (occurrence: None)
  Receive Date: 20081203
  Receipt Date: 20081118
  Transmission Date: 20090506
  Serious: Yes (Disabling)
  Sender: FDA-Public Use
  Company Number: SPV1-2008-01980

PATIENT
  Age: 38 Year
  Sex: Male
  Weight: 101.9 kg

DRUGS (3)
  1. ANAGRELIDE HYDROCHLORIDE [Suspect]
     Indication: MYELOPROLIFERATIVE DISORDER
     Dosage: 2.5 MG, 2X/DAY: BID, 3.0 MG/2.5 MG DAILY
     Dates: start: 20080507, end: 20080101
  2. ANAGRELIDE HYDROCHLORIDE [Suspect]
     Indication: MYELOPROLIFERATIVE DISORDER
     Dosage: 2.5 MG, 2X/DAY: BID, 3.0 MG/2.5 MG DAILY
     Dates: start: 20080101, end: 20080913
  3. ALLOPURINOL [Concomitant]

REACTIONS (6)
  - ABDOMINAL PAIN [None]
  - ALANINE AMINOTRANSFERASE INCREASED [None]
  - BLOOD ALKALINE PHOSPHATASE INCREASED [None]
  - BLOOD BILIRUBIN INCREASED [None]
  - CONSTIPATION [None]
  - JAUNDICE [None]
